FAERS Safety Report 14289302 (Version 1)
Quarter: 2017Q4

REPORT INFORMATION
  Report Type: Spontaneous
  Country: US (occurrence: US)
  Receive Date: 20171214
  Receipt Date: 20171214
  Transmission Date: 20180321
  Serious: Yes (Other)
  Sender: FDA-Public Use
  Company Number: None

PATIENT
  Sex: Female
  Weight: 76.5 kg

DRUGS (1)
  1. ANASTROZOLE. [Suspect]
     Active Substance: ANASTROZOLE
     Indication: BREAST CANCER RECURRENT
     Dosage: ?          QUANTITY:1 TABLET(S);?
     Route: 048
     Dates: start: 20171212, end: 20171212

REACTIONS (10)
  - Asthenia [None]
  - Arthralgia [None]
  - Condition aggravated [None]
  - Musculoskeletal pain [None]
  - Arthritis [None]
  - Loss of personal independence in daily activities [None]
  - Insomnia [None]
  - Feeling abnormal [None]
  - Bone pain [None]
  - Trigger finger [None]

NARRATIVE: CASE EVENT DATE: 20171213
